FAERS Safety Report 22993923 (Version 2)
Quarter: 2023Q4

REPORT INFORMATION
  Report Type: Spontaneous
  Country: US (occurrence: US)
  Receive Date: 20230927
  Receipt Date: 20231222
  Transmission Date: 20240110
  Serious: Yes (Hospitalization)
  Sender: FDA-Public Use
  Company Number: US-JNJFOC-20230944870

PATIENT

DRUGS (5)
  1. TYLENOL [Suspect]
     Active Substance: ACETAMINOPHEN
     Indication: Pain
     Route: 065
  2. TYLENOL [Suspect]
     Active Substance: ACETAMINOPHEN
     Indication: Sciatica
  3. XELJANZ [Suspect]
     Active Substance: TOFACITINIB CITRATE
     Indication: Product used for unknown indication
     Dosage: 5MG
     Route: 065
  4. CELECOXIB [Suspect]
     Active Substance: CELECOXIB
     Indication: Product used for unknown indication
     Route: 065
  5. METHOTREXATE [Suspect]
     Active Substance: METHOTREXATE
     Indication: Product used for unknown indication
     Route: 065

REACTIONS (3)
  - Erythema [Unknown]
  - Peripheral swelling [Unknown]
  - Insomnia [Unknown]
